FAERS Safety Report 4730242-7 (Version None)
Quarter: 2005Q3

REPORT INFORMATION
  Report Type: 
  Country: None (occurrence: None)
  Receive Date: 20050728
  Receipt Date: 20050715
  Transmission Date: 20060218
  Serious: Yes (Death)
  Sender: FDA-Public Use
  Company Number: 2005103628

PATIENT
  Age: 13 Year
  Sex: Female

DRUGS (1)
  1. GENOTROPIN [Suspect]
     Indication: RENAL FAILURE CHRONIC
     Dosage: 1.56 MG (DAILY), SUBCUTANEOUS
     Route: 058
     Dates: start: 20040519, end: 20050519

REACTIONS (2)
  - METABOLIC DISORDER [None]
  - SEPSIS [None]
